FAERS Safety Report 23284968 (Version 2)
Quarter: 2024Q1

REPORT INFORMATION
  Report Type: Spontaneous
  Country: CL (occurrence: CL)
  Receive Date: 20231211
  Receipt Date: 20240104
  Transmission Date: 20240410
  Serious: Yes (Other)
  Sender: FDA-Public Use
  Company Number: CL-SA-SAC20231027000064

PATIENT

DRUGS (5)
  1. LARONIDASE [Suspect]
     Active Substance: LARONIDASE
     Indication: Mucopolysaccharidosis I
     Dosage: 8.7 MG, QW
     Route: 042
  2. ATENOLOL [Concomitant]
     Active Substance: ATENOLOL
     Indication: Hypotension
     Dosage: 0.5 DF, QD
     Route: 048
  3. POLYETHYLENE GLYCOL 3350 [Concomitant]
     Active Substance: POLYETHYLENE GLYCOL 3350
     Indication: Product used for unknown indication
     Dosage: 1/2 TABLESPOON PER DAY
     Route: 048
  4. VITAMIN A D [Concomitant]
     Indication: Product used for unknown indication
     Dosage: 20 DROPS, QD
     Route: 048
  5. CALCIUM CARBONATE\CHOLECALCIFEROL [Concomitant]
     Active Substance: CALCIUM CARBONATE\CHOLECALCIFEROL
     Indication: Product used for unknown indication
     Dosage: 1 DF, QD
     Route: 048

REACTIONS (18)
  - Urinary retention [Recovered/Resolved]
  - Blood pressure diastolic decreased [Recovered/Resolved]
  - Nasopharyngitis [Unknown]
  - Pyrexia [Unknown]
  - Bloody discharge [Unknown]
  - Nasal discharge discolouration [Unknown]
  - Cough [Unknown]
  - Secretion discharge [Unknown]
  - Constipation [Unknown]
  - Asthenia [Unknown]
  - Respiratory disorder [Unknown]
  - Decreased appetite [Recovered/Resolved]
  - Secretion discharge [Recovered/Resolved]
  - General physical health deterioration [Recovered/Resolved]
  - Headache [Recovered/Resolved]
  - Pyrexia [Recovered/Resolved]
  - Cough [Recovered/Resolved]
  - Oxygen saturation decreased [Recovered/Resolved]

NARRATIVE: CASE EVENT DATE: 20230101
